FAERS Safety Report 5413076-X (Version None)
Quarter: 2007Q3

REPORT INFORMATION
  Report Type: 
  Country: None (occurrence: None)
  Receive Date: 20070813
  Receipt Date: 20070801
  Transmission Date: 20080115
  Serious: Yes (Other)
  Sender: FDA-Public Use
  Company Number: PL-PFIZER INC-2007064844

PATIENT
  Sex: Male

DRUGS (1)
  1. CARDURA [Suspect]

REACTIONS (2)
  - BLOOD PRESSURE INCREASED [None]
  - DRY THROAT [None]
